FAERS Safety Report 16217926 (Version 2)
Quarter: 2019Q2

REPORT INFORMATION
  Report Type: Spontaneous
  Country: US (occurrence: US)
  Receive Date: 20190419
  Receipt Date: 20190506
  Transmission Date: 20190711
  Serious: No
  Sender: FDA-Public Use
  Company Number: US-GLAXOSMITHKLINE-US2019067091

PATIENT
  Sex: Female

DRUGS (2)
  1. ALLI [Suspect]
     Active Substance: ORLISTAT
     Indication: WEIGHT LOSS DIET
     Dosage: UNK UNK, BID
     Dates: start: 201903
  2. ALLI [Suspect]
     Active Substance: ORLISTAT
     Dosage: UNK UNK, BID
     Dates: start: 201903

REACTIONS (1)
  - Drug ineffective [Unknown]
